FAERS Safety Report 6988923-0 (Version None)
Quarter: 2010Q3

REPORT INFORMATION
  Report Type: 
  Country: None (occurrence: None)
  Receive Date: 20100916
  Receipt Date: 20090806
  Transmission Date: 20110219
  Serious: Yes (Hospitalization)
  Sender: FDA-Public Use
  Company Number: FR-PFIZER INC-2009247803

PATIENT
  Sex: Male

DRUGS (8)
  1. LYRICA [Suspect]
     Indication: PAIN
     Dosage: 150 MG, UNK
     Route: 048
     Dates: start: 20090101, end: 20090317
  2. LYRICA [Suspect]
     Dosage: UNK
     Dates: start: 20090324
  3. SKENAN [Suspect]
     Indication: PAIN
     Dosage: 120 MG, 2X/DAY
     Route: 048
     Dates: end: 20090317
  4. SEVREDOL [Suspect]
     Indication: PAIN
     Dosage: UNK
     Route: 048
     Dates: end: 20090317
  5. RIVOTRIL [Suspect]
     Indication: PAIN
     Dosage: 25 MG/ML, 1X/DAY
     Route: 048
     Dates: start: 20090303, end: 20090317
  6. RIVOTRIL [Suspect]
     Dosage: UNK
     Dates: start: 20090320
  7. VELCADE [Concomitant]
     Indication: MULTIPLE MYELOMA
     Dosage: UNK
     Dates: start: 20090303
  8. DEXAMETHASONE [Concomitant]
     Indication: MULTIPLE MYELOMA
     Dosage: UNK
     Dates: start: 20090303

REACTIONS (4)
  - MIOSIS [None]
  - OVERDOSE [None]
  - RESPIRATORY DISTRESS [None]
  - SOMNOLENCE [None]
